FAERS Safety Report 6684471-6 (Version None)
Quarter: 2010Q2

REPORT INFORMATION
  Report Type: 
  Country: None (occurrence: None)
  Receive Date: 20100416
  Receipt Date: 20100406
  Transmission Date: 20101027
  Serious: Yes (Other)
  Sender: FDA-Public Use
  Company Number: PHHY2010US21544

PATIENT
  Sex: Female

DRUGS (7)
  1. VALTURNA [Suspect]
     Indication: HYPERTENSION
     Dosage: 300/320 MG DAILY
     Route: 048
     Dates: start: 20100331, end: 20100403
  2. TOPROL-XL [Concomitant]
     Indication: HYPERTENSION
     Dosage: 100-200 MG DAILY
  3. FATTY ACIDS [Concomitant]
     Indication: SUPPLEMENTATION THERAPY
     Dosage: UNK
  4. ASPIRIN [Concomitant]
     Dosage: DAILY
     Route: 048
  5. CALCIUM [Concomitant]
     Indication: SUPPLEMENTATION THERAPY
     Dosage: UNK
     Route: 048
  6. MULTI-VITAMINS [Concomitant]
     Indication: SUPPLEMENTATION THERAPY
     Dosage: UNK
     Route: 048
  7. ESTRADIOL [Concomitant]
     Indication: HYSTERECTOMY
     Dosage: 2 MG, DAILY

REACTIONS (11)
  - BLOOD PRESSURE INCREASED [None]
  - CHEST DISCOMFORT [None]
  - DYSPNOEA [None]
  - HEART RATE DECREASED [None]
  - INFLUENZA LIKE ILLNESS [None]
  - INSOMNIA [None]
  - OEDEMA PERIPHERAL [None]
  - RESTLESSNESS [None]
  - SWELLING FACE [None]
  - WEIGHT INCREASED [None]
  - WHEEZING [None]
